FAERS Safety Report 8540311-1 (Version None)
Quarter: 2012Q3

REPORT INFORMATION
  Report Type: 
  Country: None (occurrence: None)
  Receive Date: 20120726
  Receipt Date: 20120713
  Transmission Date: 20120928
  Serious: Yes (Hospitalization)
  Sender: FDA-Public Use
  Company Number: RU-ROCHE-1076374

PATIENT
  Sex: Female
  Weight: 76 kg

DRUGS (6)
  1. PEGASYS [Suspect]
     Indication: HEPATITIS C
     Dosage: DATE OF LAST DOSE GIVEN 25 MAY 2012, THERAPY DISCONTINUED. DOSE ALSO REPORTED AS 25,7143UG
     Route: 058
     Dates: start: 20111018, end: 20120528
  2. COPEGUS [Suspect]
     Indication: HEPATITIS C
     Dosage: THERAPY DISCONTINUED
     Route: 048
     Dates: start: 20111018, end: 20120528
  3. BISOPROLOL FUMARATE [Concomitant]
     Indication: HYPERTENSION
     Route: 048
     Dates: start: 20120505, end: 20120515
  4. CORDAFLEX [Concomitant]
     Indication: HYPERTENSION
     Route: 048
     Dates: end: 20120131
  5. BLINDED BI 201335 (HCV PROTEASE INHIBITOR) [Suspect]
     Indication: HEPATITIS C
     Dosage: THERAPY DISCONTINUED
     Route: 048
     Dates: start: 20111018, end: 20120403
  6. BISOPROLOL FUMARATE [Concomitant]
     Indication: ARRHYTHMIA
     Route: 048
     Dates: start: 20120515, end: 20120523

REACTIONS (2)
  - HYPOTHYROIDISM [None]
  - ATRIAL FIBRILLATION [None]
